FAERS Safety Report 6158373-8 (Version None)
Quarter: 2009Q2

REPORT INFORMATION
  Report Type: 
  Country: None (occurrence: None)
  Receive Date: 20090414
  Receipt Date: 20090414
  Transmission Date: 20091009
  Serious: Yes (Disabling)
  Sender: FDA-Public Use
  Company Number: None

PATIENT
  Age: 56 Year
  Sex: Female
  Weight: 54.4316 kg

DRUGS (1)
  1. ACTONEL [Suspect]
     Indication: OSTEOPENIA
     Dosage: 1 PILL ONCE A WEEK PO
     Route: 048
     Dates: start: 20060801, end: 20090104

REACTIONS (4)
  - ARTHRALGIA [None]
  - BONE MARROW OEDEMA [None]
  - CATARACT [None]
  - OSTEONECROSIS [None]
